FAERS Safety Report 9616764 (Version 1)
Quarter: 2013Q4

REPORT INFORMATION
  Report Type: Spontaneous
  Country: US (occurrence: US)
  Receive Date: 20131011
  Receipt Date: 20131011
  Transmission Date: 20140711
  Serious: Yes (Hospitalization, Other)
  Sender: FDA-Public Use
  Company Number: US-PFIZER INC-2013290712

PATIENT
  Age: 48 Year
  Sex: Male

DRUGS (4)
  1. DILANTIN-125 [Suspect]
     Indication: GRAND MAL CONVULSION
     Dosage: 300 MG, DAILY
     Dates: start: 1970
  2. DILANTIN-125 [Suspect]
     Dosage: 100 MG, DAILY
     Dates: start: 1971, end: 19710706
  3. ISONIAZID [Concomitant]
     Indication: TUBERCULIN TEST POSITIVE
     Dosage: 300 MG, DAILY
     Dates: start: 1969
  4. ISONIAZID [Concomitant]
     Dosage: 200 MG, DAILY
     Dates: start: 1971

REACTIONS (2)
  - Toxicity to various agents [Recovering/Resolving]
  - Hepatic encephalopathy [Recovering/Resolving]
